FAERS Safety Report 7597372-6 (Version None)
Quarter: 2011Q3

REPORT INFORMATION
  Report Type: 
  Country: None (occurrence: None)
  Receive Date: 20110708
  Receipt Date: 20110630
  Transmission Date: 20111222
  Serious: Yes (Other)
  Sender: FDA-Public Use
  Company Number: US-ALLERGAN-1107097US

PATIENT
  Age: 92 Year
  Sex: Female

DRUGS (8)
  1. MICARDIS [Concomitant]
  2. LASIX [Concomitant]
  3. ACTOS [Concomitant]
  4. LORTAB [Concomitant]
  5. CARDIZEM [Concomitant]
  6. COMBIGAN [Suspect]
     Indication: GLAUCOMA
     Dosage: 1 GTT, Q12H
     Route: 047
     Dates: start: 20110414, end: 20110420
  7. PLAVIX [Concomitant]
  8. INSULIN [Concomitant]

REACTIONS (4)
  - FEELING HOT [None]
  - NERVOUSNESS [None]
  - ASTHENIA [None]
  - DYSPNOEA [None]
